FAERS Safety Report 25661276 (Version 1)
Quarter: 2025Q3

REPORT INFORMATION
  Report Type: Spontaneous
  Country: US (occurrence: US)
  Receive Date: 20250808
  Receipt Date: 20250808
  Transmission Date: 20251020
  Serious: Yes (Other)
  Sender: PADAGIS
  Company Number: US-PADAGIS-2025PAD00947

PATIENT

DRUGS (4)
  1. IBUPROFEN [Suspect]
     Active Substance: IBUPROFEN
     Indication: Paediatric acute-onset neuropsychiatric syndrome
     Route: 065
  2. IBUPROFEN [Suspect]
     Active Substance: IBUPROFEN
     Indication: Headache
     Route: 065
  3. IBUPROFEN [Suspect]
     Active Substance: IBUPROFEN
     Indication: Arthralgia
     Route: 065
  4. IBUPROFEN [Suspect]
     Active Substance: IBUPROFEN
     Route: 065

REACTIONS (3)
  - Condition aggravated [Unknown]
  - Drug ineffective for unapproved indication [Unknown]
  - Product use issue [Unknown]
